FAERS Safety Report 17554660 (Version 1)
Quarter: 2020Q1

REPORT INFORMATION
  Report Type: Spontaneous
  Country: FR (occurrence: FR)
  Receive Date: 20200318
  Receipt Date: 20200318
  Transmission Date: 20200409
  Serious: Yes (Life-Threatening)
  Sender: FDA-Public Use
  Company Number: NVSC2020FR075424

PATIENT
  Age: 66 Year
  Sex: Female

DRUGS (5)
  1. ADALIMUMAB [Suspect]
     Active Substance: ADALIMUMAB
     Indication: PSORIATIC ARTHROPATHY
     Dosage: 40 MG, BIW
     Route: 058
     Dates: start: 201909, end: 201911
  2. METHOTREXATE. [Interacting]
     Active Substance: METHOTREXATE
     Indication: PSORIASIS
     Dosage: 20 MG, QW
     Route: 058
     Dates: end: 201911
  3. NAPROXENE [Concomitant]
     Active Substance: NAPROXEN
     Indication: PSORIATIC ARTHROPATHY
     Dosage: 1100 MG, QD
     Route: 048
     Dates: end: 20191128
  4. OMEPRAZOLE. [Concomitant]
     Active Substance: OMEPRAZOLE
     Indication: PROPHYLAXIS AGAINST GASTROINTESTINAL ULCER
     Dosage: 20 MG, QD
     Route: 048
     Dates: end: 20191128
  5. FOLIC ACID. [Concomitant]
     Active Substance: FOLIC ACID
     Indication: PRODUCT USED FOR UNKNOWN INDICATION
     Dosage: 20 MG, QW
     Route: 048
     Dates: end: 201911

REACTIONS (3)
  - Respiratory distress [Recovered/Resolved]
  - Drug interaction [Recovered/Resolved]
  - Pneumocystis jirovecii pneumonia [Recovering/Resolving]

NARRATIVE: CASE EVENT DATE: 201909
